FAERS Safety Report 4718637-9 (Version None)
Quarter: 2005Q3

REPORT INFORMATION
  Report Type: 
  Country: None (occurrence: None)
  Receive Date: 20050720
  Receipt Date: 20050718
  Transmission Date: 20060218
  Serious: Yes (Hospitalization)
  Sender: FDA-Public Use
  Company Number: FR-GLAXOSMITHKLINE-B0388015A

PATIENT
  Age: 61 Year
  Sex: Female

DRUGS (5)
  1. ZELITREX [Suspect]
     Indication: HERPES ZOSTER
     Dosage: 6TAB PER DAY
     Route: 048
     Dates: start: 20050610, end: 20050612
  2. SKENAN [Suspect]
     Dosage: 120MG PER DAY
     Route: 048
     Dates: start: 20050610, end: 20050612
  3. ANAFRANIL [Concomitant]
     Dosage: 25MG PER DAY
     Route: 048
     Dates: start: 20050604, end: 20050609
  4. DI ANTALVIC [Concomitant]
     Dosage: 2UNIT THREE TIMES PER DAY
     Dates: start: 20050604, end: 20050609
  5. CLONAZEPAM [Concomitant]
     Dosage: 40DROP PER DAY
     Route: 048
     Dates: start: 20050610, end: 20050612

REACTIONS (6)
  - ACIDOSIS [None]
  - DEPRESSED LEVEL OF CONSCIOUSNESS [None]
  - HYPERCAPNIA [None]
  - LOSS OF CONSCIOUSNESS [None]
  - OVERDOSE [None]
  - RENAL FAILURE ACUTE [None]
